FAERS Safety Report 20937486 (Version 2)
Quarter: 2022Q4

REPORT INFORMATION
  Report Type: Spontaneous
  Country: HR (occurrence: HR)
  Receive Date: 20220609
  Receipt Date: 20221121
  Transmission Date: 20230112
  Serious: Yes (Hospitalization)
  Sender: FDA-Public Use
  Company Number: HR-BRISTOL-MYERS SQUIBB COMPANY-2022-051177

PATIENT
  Age: 51 Year
  Sex: Male

DRUGS (2)
  1. OPDIVO [Suspect]
     Active Substance: NIVOLUMAB
     Indication: Metastatic malignant melanoma
     Dosage: 3 CYCLES WITH PROLONGED INTERVALS DUE TO SIDE
     Route: 042
     Dates: start: 20180614, end: 20180806
  2. YERVOY [Suspect]
     Active Substance: IPILIMUMAB
     Indication: Metastatic malignant melanoma
     Dosage: 3 CYCLES WITH PROLONGED INTERVALS DUE TO SIDE
     Route: 042
     Dates: start: 20180614, end: 20180806

REACTIONS (1)
  - Blepharitis [Unknown]
